FAERS Safety Report 9549786 (Version 2)
Quarter: 2013Q3

REPORT INFORMATION
  Report Type: Spontaneous
  Country: US (occurrence: US)
  Receive Date: 20130924
  Receipt Date: 20130924
  Transmission Date: 20140515
  Serious: No
  Sender: FDA-Public Use
  Company Number: US-ALLERGAN-1308940US

PATIENT
  Age: 80 Year
  Sex: Male

DRUGS (6)
  1. LUMIGAN 0.01% [Suspect]
     Indication: GLAUCOMA
     Dosage: 2 GTT, UNK
     Route: 047
     Dates: start: 201304
  2. HYPERTENSION MEDICATION NOS [Concomitant]
     Indication: HYPERTENSION
     Dosage: UNK
  3. HEART MEDICATION NOS [Concomitant]
     Indication: PRODUCT USED FOR UNKNOWN INDICATION
     Dosage: UNK
  4. BABY ASA [Concomitant]
     Indication: EPISTAXIS
     Dosage: UNK
  5. LIPITOR [Concomitant]
     Indication: BLOOD CHOLESTEROL INCREASED
     Dosage: UNK
  6. DORZOLAMIDE [Concomitant]
     Indication: GLAUCOMA
     Dosage: 2 GTT, BID
     Route: 047

REACTIONS (2)
  - Intraocular pressure increased [Recovered/Resolved]
  - Inappropriate schedule of drug administration [Unknown]
